FAERS Safety Report 15396956 (Version 2)
Quarter: 2019Q2

REPORT INFORMATION
  Report Type: Spontaneous
  Country: AT (occurrence: AT)
  Receive Date: 20180918
  Receipt Date: 20190501
  Transmission Date: 20190711
  Serious: Yes (Other)
  Sender: FDA-Public Use
  Company Number: AT-ROCHE-2183686

PATIENT
  Sex: Female

DRUGS (4)
  1. TAXOL [Concomitant]
     Active Substance: PACLITAXEL
     Indication: OVARIAN CANCER
     Dosage: 1ST LINE CHEMOTHERAPY (6 CYCLES AVASTIN/CARBOTAXOL ;ONGOING: NO
     Route: 065
     Dates: start: 20140208, end: 20140616
  2. AVASTIN [Suspect]
     Active Substance: BEVACIZUMAB
     Indication: ASCITES
  3. AVASTIN [Suspect]
     Active Substance: BEVACIZUMAB
     Indication: OVARIAN CANCER
     Dosage: 1ST LINE CHEMOTHERAPY (6 CYCLES AVASTIN/CARBOTAXOL
     Route: 065
     Dates: start: 20140208, end: 20140616
  4. CARBOPLATIN. [Concomitant]
     Active Substance: CARBOPLATIN
     Indication: OVARIAN CANCER
     Dosage: 1ST LINE CHEMOTHERAPY (6 CYCLES AVASTIN/CARBOTAXOL
     Route: 065
     Dates: start: 20140208, end: 20140616

REACTIONS (2)
  - Lymphadenopathy [Unknown]
  - Ovarian cancer recurrent [Unknown]
